FAERS Safety Report 4424295-3 (Version None)
Quarter: 2004Q3

REPORT INFORMATION
  Report Type: 
  Country: None (occurrence: None)
  Receive Date: 20040809
  Receipt Date: 20040726
  Transmission Date: 20050211
  Serious: Yes (Other)
  Sender: FDA-Public Use
  Company Number: 2004225957US

PATIENT
  Age: 65 Year
  Sex: Female
  Weight: 93 kg

DRUGS (3)
  1. CELEBREX [Suspect]
     Indication: ARTHRITIS
     Dosage: ORAL
     Route: 048
  2. ANTIHYPERTENSIVES [Concomitant]
  3. K-DUR 10 [Concomitant]

REACTIONS (4)
  - ARTHROPATHY [None]
  - BLOOD CHOLESTEROL INCREASED [None]
  - LOW DENSITY LIPOPROTEIN INCREASED [None]
  - WEIGHT INCREASED [None]
